FAERS Safety Report 8289309 (Version 2)
Quarter: 2013Q3

REPORT INFORMATION
  Report Type: Spontaneous
  Country: BE (occurrence: BE)
  Receive Date: 20111213
  Receipt Date: 20130718
  Transmission Date: 20140515
  Serious: Yes (Other)
  Sender: FDA-Public Use
  Company Number: PHHY2011BE100952

PATIENT
  Age: 71 Year
  Sex: Male

DRUGS (1)
  1. ZOLEDRONATE [Suspect]
     Indication: PROSTATE CANCER METASTATIC

REACTIONS (8)
  - Exophthalmos [Unknown]
  - Conjunctival haemorrhage [Unknown]
  - Conjunctival oedema [Unknown]
  - Eyelid oedema [Unknown]
  - Parophthalmia [Unknown]
  - Ocular hyperaemia [Unknown]
  - Eye pain [Unknown]
  - Blood thyroid stimulating hormone decreased [Unknown]
